FAERS Safety Report 24918082 (Version 2)
Quarter: 2025Q1

REPORT INFORMATION
  Report Type: Spontaneous
  Country: CA (occurrence: CA)
  Receive Date: 20250203
  Receipt Date: 20250207
  Transmission Date: 20250409
  Serious: Yes (Death)
  Sender: PFIZER
  Company Number: CA-PFIZER INC-PV202400162795

PATIENT
  Age: 72 Year
  Sex: Male
  Weight: 105 kg

DRUGS (2)
  1. ZIRABEV [Suspect]
     Active Substance: BEVACIZUMAB-BVZR
     Indication: Brain radiation necrosis
     Dosage: 800 MG Q21 DAYS X 3
     Route: 042
     Dates: start: 20241227
  2. ZIRABEV [Suspect]
     Active Substance: BEVACIZUMAB-BVZR
     Dosage: 825 MG, Q 21 DAYS X 3
     Route: 042
     Dates: start: 20250115

REACTIONS (7)
  - Death [Fatal]
  - Blood pressure fluctuation [Unknown]
  - Poor venous access [Unknown]
  - Oedema peripheral [Not Recovered/Not Resolved]
  - Movement disorder [Not Recovered/Not Resolved]
  - Wound [Unknown]
  - Off label use [Unknown]

NARRATIVE: CASE EVENT DATE: 20241227
